FAERS Safety Report 9819399 (Version 1)
Quarter: 2014Q1

REPORT INFORMATION
  Report Type: Report from Study
  Country: US (occurrence: US)
  Receive Date: 20140115
  Receipt Date: 20140115
  Transmission Date: 20141002
  Serious: Yes (Other)
  Sender: FDA-Public Use
  Company Number: PHEH2014US001058

PATIENT
  Sex: Female

DRUGS (1)
  1. GILENYA [Suspect]
     Dosage: 0.5 MG, QD
     Route: 048
     Dates: start: 201304

REACTIONS (6)
  - Head injury [Unknown]
  - Hypertension [Unknown]
  - Movement disorder [Unknown]
  - Fall [Unknown]
  - Cough [Unknown]
  - Dizziness [Unknown]
